FAERS Safety Report 9170648 (Version 1)
Quarter: 2013Q1

REPORT INFORMATION
  Report Type: Spontaneous
  Country: FR (occurrence: None)
  Receive Date: 20130312
  Receipt Date: 20130312
  Transmission Date: 20140127
  Serious: No
  Sender: FDA-Public Use
  Company Number: 2013000041

PATIENT
  Age: 81 Year
  Sex: Male

DRUGS (6)
  1. ACEON [Suspect]
     Route: 048
  2. DEPAKINE [Suspect]
     Route: 048
     Dates: start: 200803, end: 20080403
  3. CHIBRO-PROSCAR [Suspect]
  4. SKELID [Suspect]
  5. KARDEGIC [Suspect]
     Route: 048
  6. TAHOR [Suspect]

REACTIONS (6)
  - Walking disability [None]
  - Dependence [None]
  - Fall [None]
  - Epilepsy [None]
  - Autonomic nervous system imbalance [None]
  - Wound [None]
